FAERS Safety Report 6417539-X (Version None)
Quarter: 2009Q4

REPORT INFORMATION
  Report Type: 
  Country: None (occurrence: None)
  Receive Date: 20091028
  Receipt Date: 20091016
  Transmission Date: 20100525
  Serious: Yes (Hospitalization)
  Sender: FDA-Public Use
  Company Number: FR-CELGENEUS-056-20785-09092309

PATIENT
  Sex: Female
  Weight: 60 kg

DRUGS (4)
  1. THALIDOMIDE PHARMION [Suspect]
     Indication: MULTIPLE MYELOMA
     Route: 048
     Dates: start: 20080915
  2. THALIDOMIDE PHARMION [Suspect]
     Route: 048
     Dates: start: 20090301
  3. THALIDOMIDE PHARMION [Suspect]
     Route: 048
     Dates: start: 20090601
  4. DEXAMETHASONE [Concomitant]
     Indication: MULTIPLE MYELOMA
     Route: 065
     Dates: end: 20090301

REACTIONS (2)
  - DRUG INEFFECTIVE [None]
  - MULTIPLE MYELOMA [None]
